FAERS Safety Report 21565668 (Version 1)
Quarter: 2022Q4

REPORT INFORMATION
  Report Type: Report from Study
  Country: US (occurrence: US)
  Receive Date: 20221108
  Receipt Date: 20221108
  Transmission Date: 20230113
  Serious: No
  Sender: FDA-Public Use
  Company Number: US-ABBVIE-22K-163-4533385-00

PATIENT
  Sex: Female

DRUGS (20)
  1. RINVOQ [Suspect]
     Active Substance: UPADACITINIB
     Indication: Rheumatoid arthritis
     Route: 048
     Dates: start: 20210630
  2. 5 mg Xyzal (Levocetirizine dihydrochloride) [Concomitant]
     Indication: Product used for unknown indication
  3. MODERNA COVID-19 VACCINE [Concomitant]
     Active Substance: ELASOMERAN
     Indication: COVID-19 immunisation
     Dosage: TIME INTERVAL: 1 TOTAL: FIRST DOSE
     Route: 030
     Dates: start: 20210129, end: 20210129
  4. MODERNA COVID-19 VACCINE [Concomitant]
     Active Substance: ELASOMERAN
     Indication: COVID-19 immunisation
     Dosage: TIME INTERVAL: 1 TOTAL: SECOND DOSE
     Route: 030
     Dates: start: 20210226, end: 20210226
  5. MODERNA COVID-19 VACCINE [Concomitant]
     Active Substance: ELASOMERAN
     Indication: COVID-19 immunisation
     Dosage: TIME INTERVAL: 1 TOTAL: THIRD DOSE
     Route: 030
     Dates: start: 20220115, end: 20220115
  6. 200 mg Magnesium oxide (Magnesium oxide) [Concomitant]
     Indication: Product used for unknown indication
  7. ESTRADIOL [Concomitant]
     Active Substance: ESTRADIOL
     Indication: Product used for unknown indication
  8. Oyster Shell Calcium +D (Calcium carbonate;Ergocalciferol) [Concomitant]
     Indication: Product used for unknown indication
  9. 10 mg Rosuvastatin calcium (Rosuvastatin calcium) [Concomitant]
     Indication: Product used for unknown indication
  10. 100 ?g Levothyroxine sodium (Levothyroxine sodium) [Concomitant]
     Indication: Product used for unknown indication
     Dosage: 100 MCG
  11. METOPROLOL SUCCINATE [Concomitant]
     Active Substance: METOPROLOL SUCCINATE
     Indication: Product used for unknown indication
  12. VITAMIN B COMPLEX [Concomitant]
     Active Substance: CYANOCOBALAMIN\DEXPANTHENOL\NIACINAMIDE\PYRIDOXINE HYDROCHLORIDE\RIBOFLAVIN 5^-PHOSPHATE SODIUM\THIA
     Indication: Product used for unknown indication
  13. VITAMINS [Concomitant]
     Active Substance: VITAMINS
     Indication: Product used for unknown indication
  14. 10 mg Rosuvastatin calcium (Rosuvastatin calcium) [Concomitant]
     Indication: Product used for unknown indication
  15. Potassium 99 (Potassium) [Concomitant]
     Indication: Product used for unknown indication
  16. MVW Complete formulation d3000 (Ascorbic acid;Betacarotene;Biotin;C... [Concomitant]
     Indication: Product used for unknown indication
  17. 100 mg Losartan potassium, tablets (Losartan potassium) [Concomitant]
     Indication: Product used for unknown indication
  18. 10 mg Montelukast sodium (Montelukast sodium) [Concomitant]
     Indication: Product used for unknown indication
  19. VITAMIN B COMPLEX [Concomitant]
     Active Substance: CYANOCOBALAMIN\DEXPANTHENOL\NIACINAMIDE\PYRIDOXINE HYDROCHLORIDE\RIBOFLAVIN 5^-PHOSPHATE SODIUM\THIA
     Indication: Product used for unknown indication
     Dosage: 100
  20. 10 mg Zyrtec (Cetirizine hydrochloride) [Concomitant]
     Indication: Product used for unknown indication

REACTIONS (2)
  - Pulmonary congestion [Recovered/Resolved]
  - Sinusitis [Not Recovered/Not Resolved]

NARRATIVE: CASE EVENT DATE: 20220101
